FAERS Safety Report 6225279-5 (Version None)
Quarter: 2009Q2

REPORT INFORMATION
  Report Type: 
  Country: None (occurrence: None)
  Receive Date: 20090612
  Receipt Date: 20090410
  Transmission Date: 20091009
  Serious: No
  Sender: FDA-Public Use
  Company Number: US-ABBOTT-09P-163-0567667-00

PATIENT
  Sex: Female
  Weight: 90.8 kg

DRUGS (3)
  1. HUMIRA [Suspect]
     Indication: RHEUMATOID ARTHRITIS
     Route: 058
     Dates: start: 20081001
  2. FOLIC ACID [Concomitant]
     Indication: RHEUMATOID ARTHRITIS
  3. LISINOPRIL [Concomitant]
     Indication: HYPERTENSION

REACTIONS (2)
  - RHEUMATOID ARTHRITIS [None]
  - TINEA PEDIS [None]
